FAERS Safety Report 7383651-4 (Version None)
Quarter: 2011Q1

REPORT INFORMATION
  Report Type: 
  Country: None (occurrence: None)
  Receive Date: 20110330
  Receipt Date: 20090930
  Transmission Date: 20110831
  Serious: Yes (Other)
  Sender: FDA-Public Use
  Company Number: US-BAYER-200934231NA

PATIENT
  Sex: Male

DRUGS (1)
  1. TRASYLOL [Suspect]
     Indication: PRODUCT USED FOR UNKNOWN INDICATION

REACTIONS (13)
  - PAIN [None]
  - UNEVALUABLE EVENT [None]
  - NERVOUSNESS [None]
  - RENAL INJURY [None]
  - MULTI-ORGAN FAILURE [None]
  - INJURY [None]
  - FEAR [None]
  - ANHEDONIA [None]
  - EMOTIONAL DISTRESS [None]
  - DEPRESSION [None]
  - RENAL FAILURE [None]
  - FEAR OF DEATH [None]
  - ANXIETY [None]
